FAERS Safety Report 9347163 (Version 1)
Quarter: 2013Q2

REPORT INFORMATION
  Report Type: Spontaneous
  Country: GB (occurrence: GB)
  Receive Date: 20130613
  Receipt Date: 20130613
  Transmission Date: 20140414
  Serious: Yes (Disabling)
  Sender: FDA-Public Use
  Company Number: GB-MERCK-1306USA000389

PATIENT
  Age: 26 Year
  Sex: Male

DRUGS (1)
  1. PROPECIA 1MG FILM-COATED TABLET [Suspect]
     Dosage: 1 MG
     Route: 048
     Dates: start: 20021130, end: 20031130

REACTIONS (2)
  - Chronic fatigue syndrome [Recovering/Resolving]
  - Endocrine disorder [Recovering/Resolving]
